FAERS Safety Report 10182392 (Version 1)
Quarter: 2014Q2

REPORT INFORMATION
  Report Type: Spontaneous
  Country: SE (occurrence: SE)
  Receive Date: 20140520
  Receipt Date: 20140520
  Transmission Date: 20141212
  Serious: Yes (Other)
  Sender: FDA-Public Use
  Company Number: SE-ROCHE-1403056

PATIENT
  Age: 49 Year
  Sex: Female

DRUGS (5)
  1. MABTHERA [Suspect]
     Indication: PRODUCT USED FOR UNKNOWN INDICATION
     Route: 065
     Dates: start: 20130219, end: 20130219
  2. MABTHERA [Suspect]
     Route: 065
     Dates: start: 201309, end: 201309
  3. MABTHERA [Suspect]
     Dosage: LAST DOSE PRIOR TO ADVERSE EVENT: MAR/2014
     Route: 065
     Dates: start: 201403
  4. METHOTREXATE [Concomitant]
     Route: 065
  5. PREDNISOLONE [Concomitant]
     Route: 065

REACTIONS (4)
  - Neutrophilia [Recovered/Resolved]
  - Ear pain [Recovered/Resolved]
  - Upper respiratory tract infection [Recovered/Resolved]
  - Bronchitis [Recovered/Resolved]
